FAERS Safety Report 6809034-0 (Version None)
Quarter: 2010Q2

REPORT INFORMATION
  Report Type: 
  Country: None (occurrence: None)
  Receive Date: 20100630
  Receipt Date: 20100308
  Transmission Date: 20101027
  Serious: Yes (Other)
  Sender: FDA-Public Use
  Company Number: US-ASTRAZENECA-2007UW16988

PATIENT
  Age: 47 Year
  Sex: Female
  Weight: 119.7 kg

DRUGS (28)
  1. SEROQUEL [Suspect]
     Indication: BIPOLAR DISORDER
     Route: 048
     Dates: start: 19990116, end: 20060225
  2. SEROQUEL [Suspect]
     Route: 048
     Dates: start: 20041230, end: 20051226
  3. SEROQUEL [Suspect]
     Route: 048
     Dates: start: 20050128, end: 20050819
  4. SEROQUEL [Suspect]
     Route: 048
     Dates: start: 20021025, end: 20030509
  5. SEROQUEL [Suspect]
     Route: 048
     Dates: start: 20030418
  6. ABILIFY [Concomitant]
     Dates: start: 20060101
  7. TRAZODONE HCL [Concomitant]
     Dates: start: 19990128
  8. ENDODAN [Concomitant]
     Dates: start: 20001003, end: 20020403
  9. ALPRAZOLAM [Concomitant]
     Dates: start: 19990116
  10. PREDNISONE [Concomitant]
     Dates: start: 19990527, end: 19990702
  11. PHENTERMINE [Concomitant]
     Dates: start: 19990715
  12. APAP/CODEINE #4 [Concomitant]
     Dates: start: 19990427, end: 19990621
  13. TALWIN NX [Concomitant]
     Dates: start: 19991213, end: 20000309
  14. PENTAZOCINE/NALOXONE [Concomitant]
     Dates: start: 19990715
  15. PROMETHAZINE VC W/ CODEINE [Concomitant]
     Dates: start: 19990930
  16. EFFEXOR [Concomitant]
     Dates: start: 19990118, end: 20010618
  17. PREMARIN [Concomitant]
     Dates: start: 19990128, end: 19990427
  18. ACCOLATE [Concomitant]
     Dates: start: 19990517, end: 19990812
  19. ZITHROMAX [Concomitant]
     Dates: start: 19990921, end: 19991001
  20. CYANOCOBALA [Concomitant]
     Dates: start: 20000614
  21. XENICAL [Concomitant]
     Dates: start: 20000309
  22. AVELOX [Concomitant]
     Dates: start: 20001106
  23. IPRATROPIUM [Concomitant]
     Dates: start: 19990921
  24. METAPROTERENOL [Concomitant]
     Dates: start: 19990527, end: 20000102
  25. AZMACORT [Concomitant]
     Dates: start: 19990527, end: 20000102
  26. ALBUTEROL [Concomitant]
     Dates: start: 19990527, end: 20000102
  27. LIPITOR [Concomitant]
     Route: 048
     Dates: start: 20080211
  28. LISINOPRIL [Concomitant]
     Route: 048
     Dates: start: 20080211

REACTIONS (4)
  - DIABETES MELLITUS [None]
  - DIABETES MELLITUS INADEQUATE CONTROL [None]
  - NEUROPATHY PERIPHERAL [None]
  - OBESITY [None]
